FAERS Safety Report 8154108-8 (Version None)
Quarter: 2012Q1

REPORT INFORMATION
  Report Type: 
  Country: None (occurrence: None)
  Receive Date: 20120221
  Receipt Date: 20120209
  Transmission Date: 20120608
  Serious: Yes (Other)
  Sender: FDA-Public Use
  Company Number: US-MERCK-1202USA01514

PATIENT
  Age: 74 Year
  Sex: Female

DRUGS (2)
  1. FOSAMAX [Suspect]
     Route: 048
     Dates: end: 20120101
  2. CYMBALTA [Suspect]
     Route: 065
     Dates: end: 20120101

REACTIONS (2)
  - SWELLING [None]
  - CARDIAC FAILURE [None]
